FAERS Safety Report 4859963-2 (Version None)
Quarter: 2005Q4

REPORT INFORMATION
  Report Type: 
  Country: None (occurrence: None)
  Receive Date: 20051219
  Receipt Date: 20051212
  Transmission Date: 20060501
  Serious: Yes (Hospitalization)
  Sender: FDA-Public Use
  Company Number: IT-MERCK-0512ITA00004

PATIENT
  Age: 72 Year
  Sex: Male

DRUGS (8)
  1. ZOCOR [Suspect]
     Indication: HYPERCHOLESTEROLAEMIA
     Route: 048
     Dates: start: 20030101, end: 20051101
  2. AMIODARONE HYDROCHLORIDE [Suspect]
     Indication: CARDIAC FIBRILLATION
     Route: 048
     Dates: start: 20050601, end: 20051101
  3. ASPIRIN [Concomitant]
     Route: 048
  4. NITROGLYCERIN [Concomitant]
     Route: 065
  5. FUROSEMIDE SODIUM [Concomitant]
     Route: 048
  6. PERINDOPRIL ERBUMINE [Concomitant]
     Route: 048
  7. LANSOPRAZOLE [Concomitant]
     Route: 048
  8. LORAZEPAM [Concomitant]
     Route: 048

REACTIONS (2)
  - LIVER DISORDER [None]
  - MYOPATHY [None]
